FAERS Safety Report 7372538-9 (Version None)
Quarter: 2011Q1

REPORT INFORMATION
  Report Type: 
  Country: None (occurrence: None)
  Receive Date: 20110316
  Receipt Date: 20110303
  Transmission Date: 20110831
  Serious: Yes (Other)
  Sender: FDA-Public Use
  Company Number: 028519

PATIENT
  Age: 78 Year
  Sex: Female

DRUGS (1)
  1. KEPPRA [Suspect]
     Indication: STATUS EPILEPTICUS
     Dosage: (500 MG QID ORAL)
     Route: 048
     Dates: start: 20110211, end: 20110213

REACTIONS (1)
  - THROMBOCYTOPENIA [None]
